FAERS Safety Report 18902572 (Version 4)
Quarter: 2021Q1

REPORT INFORMATION
  Report Type: Spontaneous
  Country: GB (occurrence: GB)
  Receive Date: 20210217
  Receipt Date: 20210324
  Transmission Date: 20210420
  Serious: Yes (Death, Hospitalization, Other)
  Sender: FDA-Public Use
  Company Number: GB-CIPLA LTD.-2021GB01018

PATIENT

DRUGS (6)
  1. TRAMADOL. [Concomitant]
     Active Substance: TRAMADOL
     Indication: PAIN
     Dosage: UNK
     Route: 048
     Dates: start: 2017
  2. FUROSEMIDE. [Concomitant]
     Active Substance: FUROSEMIDE
     Indication: OEDEMA PERIPHERAL
     Dosage: UNK
     Route: 048
     Dates: start: 201710, end: 202002
  3. MORPHINE [Concomitant]
     Active Substance: MORPHINE
     Indication: PAIN
     Dosage: UNK
     Route: 048
     Dates: start: 2017
  4. PREGABALIN. [Concomitant]
     Active Substance: PREGABALIN
     Dosage: UNK
     Route: 065
     Dates: start: 201801
  5. FINASTERIDE. [Suspect]
     Active Substance: FINASTERIDE
     Indication: SPINAL DEFORMITY
     Dosage: UNK, DAILY
     Route: 065
     Dates: start: 202002
  6. PREGABALIN. [Concomitant]
     Active Substance: PREGABALIN
     Indication: PAIN
     Dosage: 600 MILLIGRAM, UNK
     Route: 048
     Dates: start: 2017, end: 202002

REACTIONS (12)
  - Delirium [Unknown]
  - Off label use [Unknown]
  - Catheter site haemorrhage [Unknown]
  - Agitation [Unknown]
  - Fluid retention [Unknown]
  - Chronic obstructive pulmonary disease [Fatal]
  - Urinary tract infection [Unknown]
  - Balance disorder [Unknown]
  - Oedema peripheral [Recovered/Resolved]
  - Confusional state [Recovered/Resolved]
  - Dysuria [Recovered/Resolved]
  - Feeling abnormal [Unknown]

NARRATIVE: CASE EVENT DATE: 202002
